FAERS Safety Report 13199550 (Version 1)
Quarter: 2017Q1

REPORT INFORMATION
  Report Type: Spontaneous
  Country: JP (occurrence: JP)
  Receive Date: 20170208
  Receipt Date: 20170208
  Transmission Date: 20170428
  Serious: Yes (Other)
  Sender: FDA-Public Use
  Company Number: JP-SA-2017SA019625

PATIENT
  Age: 78 Year
  Sex: Male

DRUGS (6)
  1. SAXIZON [Concomitant]
     Active Substance: HYDROCORTISONE SODIUM SUCCINATE
     Route: 065
     Dates: start: 20170126
  2. MIRACLID [Suspect]
     Active Substance: ULINASTATIN
     Dosage: 100,000 UNITS FOR INJECTION DOSE:100000 UNIT(S)
     Route: 058
     Dates: start: 20170126
  3. CEFMETAZOLE [Concomitant]
     Active Substance: CEFMETAZOLE
     Route: 065
     Dates: start: 20170126
  4. CLEXANE [Suspect]
     Active Substance: ENOXAPARIN SODIUM
     Indication: BILE DUCT CANCER
     Route: 058
     Dates: start: 20170128, end: 20170129
  5. TAKEPRON [Concomitant]
     Active Substance: LANSOPRAZOLE
     Route: 065
     Dates: start: 20170126
  6. REMINARON [Concomitant]
     Active Substance: GABEXATE MESYLATE
     Route: 065
     Dates: start: 20170126

REACTIONS (1)
  - Coagulation time prolonged [Not Recovered/Not Resolved]

NARRATIVE: CASE EVENT DATE: 20170130
